FAERS Safety Report 5563074-0 (Version None)
Quarter: 2007Q4

REPORT INFORMATION
  Report Type: 
  Country: None (occurrence: None)
  Receive Date: 20071217
  Receipt Date: 20071212
  Transmission Date: 20080405
  Serious: Yes (Other)
  Sender: FDA-Public Use
  Company Number: A0698609A

PATIENT
  Age: 85 Year
  Sex: Male

DRUGS (17)
  1. ADVAIR DISKUS 100/50 [Suspect]
     Indication: CHRONIC OBSTRUCTIVE PULMONARY DISEASE
     Route: 055
     Dates: start: 20030101
  2. CLONAZEPAM [Concomitant]
  3. SPIRONOLACTONE [Concomitant]
  4. ALLOPURINOL [Concomitant]
  5. OMEPRAZOLE [Concomitant]
  6. ALBUTEROL [Concomitant]
  7. CHLORDIAZEPOXIDE + CLIDINIUM BROMIDE [Concomitant]
  8. AMLODIPINE [Concomitant]
  9. UNSPECIFIED MEDICATION [Concomitant]
  10. IPRATROPIUM BROMIDE [Concomitant]
  11. XOPENEX [Concomitant]
  12. GLUCOSAMINE SULFATE [Concomitant]
  13. VITAMIN [Concomitant]
  14. VITAMIN B COMPLEX CAP [Concomitant]
  15. FOLIC ACID [Concomitant]
  16. FISH OIL [Concomitant]
  17. LUMIGAN [Concomitant]

REACTIONS (5)
  - DYSPHONIA [None]
  - GLAUCOMA [None]
  - INHALATION THERAPY [None]
  - OROPHARYNGITIS FUNGAL [None]
  - VISUAL ACUITY REDUCED [None]
